FAERS Safety Report 6705467-1 (Version None)
Quarter: 2010Q2

REPORT INFORMATION
  Report Type: 
  Country: None (occurrence: None)
  Receive Date: 20100503
  Receipt Date: 20100421
  Transmission Date: 20101027
  Serious: No
  Sender: FDA-Public Use
  Company Number: US-BIOGENIDEC-2010BI013879

PATIENT
  Age: 46 Year
  Sex: Female

DRUGS (2)
  1. TYSABRI [Suspect]
     Indication: MULTIPLE SCLEROSIS
     Route: 042
     Dates: start: 20080701, end: 20091106
  2. TYSABRI [Suspect]
     Route: 042
     Dates: start: 20100217

REACTIONS (3)
  - NASOPHARYNGITIS [None]
  - TREMOR [None]
  - WHITE BLOOD CELL COUNT DECREASED [None]
